FAERS Safety Report 5287553-9 (Version None)
Quarter: 2007Q1

REPORT INFORMATION
  Report Type: 
  Country: None (occurrence: None)
  Receive Date: 20070126
  Receipt Date: 20061114
  Transmission Date: 20070707
  Serious: No
  Sender: FDA-Public Use
  Company Number: 2006CT000964

PATIENT
  Age: 49 Year
  Sex: Female
  Weight: 70.7611 kg

DRUGS (7)
  1. VENTAVIS [Suspect]
     Indication: PULMONARY HYPERTENSION
     Dosage: 5 UG;6TO9X/DAY;INH
     Route: 055
     Dates: start: 20060916, end: 20061115
  2. PREDNISONE TAB [Concomitant]
  3. IMURAN [Concomitant]
  4. FOSAMAX [Concomitant]
  5. PANTOPRAZOLE [Concomitant]
  6. LISINOPRIL [Concomitant]
  7. CARVEDILOL [Concomitant]

REACTIONS (3)
  - BLEPHAROSPASM [None]
  - GLOSSODYNIA [None]
  - PAIN IN JAW [None]
